FAERS Safety Report 4288484-3 (Version None)
Quarter: 2004Q1

REPORT INFORMATION
  Report Type: 
  Country: None (occurrence: None)
  Receive Date: 20040205
  Receipt Date: 20040121
  Transmission Date: 20041129
  Serious: Yes (Hospitalization)
  Sender: FDA-Public Use
  Company Number: US_0401100151

PATIENT
  Age: 67 Year
  Sex: Male
  Weight: 71 kg

DRUGS (2)
  1. HUMALOG [Suspect]
     Indication: DIABETES MELLITUS
     Dates: start: 20020101
  2. LANTUS [Concomitant]

REACTIONS (6)
  - GALLBLADDER DISORDER [None]
  - HAEMOLYTIC ANAEMIA [None]
  - HEPATIC NEOPLASM [None]
  - INJECTION SITE DISCOLOURATION [None]
  - PHARMACEUTICAL PRODUCT COMPLAINT [None]
  - SPLEEN DISORDER [None]
